FAERS Safety Report 8325624-0 (Version None)
Quarter: 2012Q2

REPORT INFORMATION
  Report Type: 
  Country: None (occurrence: None)
  Receive Date: 20120501
  Receipt Date: 20100520
  Transmission Date: 20120825
  Serious: No
  Sender: FDA-Public Use
  Company Number: US-TEVA-2010002861

PATIENT
  Sex: Female
  Weight: 76.272 kg

DRUGS (2)
  1. NUVIGIL [Suspect]
     Dosage: 37.5 MILLIGRAM;
     Route: 048
     Dates: start: 20100520
  2. NUVIGIL [Suspect]
     Indication: SLEEP APNOEA SYNDROME
     Dosage: 75 MILLIGRAM;
     Route: 048
     Dates: start: 20100519, end: 20100519

REACTIONS (2)
  - INSOMNIA [None]
  - DRUG INEFFECTIVE [None]
